FAERS Safety Report 5341510-2 (Version None)
Quarter: 2007Q2

REPORT INFORMATION
  Report Type: 
  Country: None (occurrence: None)
  Receive Date: 20070601
  Receipt Date: 20070523
  Transmission Date: 20071010
  Serious: Yes (Hospitalization, Other)
  Sender: FDA-Public Use
  Company Number: PHBS2007GB08832

PATIENT
  Age: 54 Year
  Sex: Male
  Weight: 68 kg

DRUGS (1)
  1. PAMIDRONATE DISODIUM [Suspect]
     Indication: BLOOD CALCIUM INCREASED
     Dosage: THREE 30-MG DOSES

REACTIONS (4)
  - DRUG INEFFECTIVE [None]
  - DYSPNOEA PAROXYSMAL NOCTURNAL [None]
  - HYPERCALCAEMIA [None]
  - PARAESTHESIA [None]
